FAERS Safety Report 6959897-3 (Version None)
Quarter: 2010Q3

REPORT INFORMATION
  Report Type: 
  Country: None (occurrence: None)
  Receive Date: 20100901
  Receipt Date: 20100823
  Transmission Date: 20110219
  Serious: No
  Sender: FDA-Public Use
  Company Number: US-BIOGENIDEC-2010BI028872

PATIENT
  Sex: Male

DRUGS (1)
  1. AVONEX [Suspect]
     Indication: MULTIPLE SCLEROSIS
     Route: 030
     Dates: start: 20071201

REACTIONS (9)
  - ASTHENIA [None]
  - COGNITIVE DISORDER [None]
  - DEPRESSION [None]
  - FATIGUE [None]
  - MEMORY IMPAIRMENT [None]
  - PAIN [None]
  - SPEECH DISORDER [None]
  - SUICIDAL IDEATION [None]
  - WEIGHT INCREASED [None]
